FAERS Safety Report 23954295 (Version 1)
Quarter: 2024Q2

REPORT INFORMATION
  Report Type: Spontaneous
  Country: US (occurrence: None)
  Receive Date: 20240609
  Receipt Date: 20240609
  Transmission Date: 20240715
  Serious: No
  Sender: FDA-Public Use
  Company Number: US-ROCHE-3520165

PATIENT
  Sex: Male

DRUGS (1)
  1. ATEZOLIZUMAB [Suspect]
     Active Substance: ATEZOLIZUMAB
     Indication: Product used for unknown indication
     Dosage: ON AN UNKNOWN DATE IN MAR/2021, HE RECEIVED THE LAST DOSE OF ATEZOLIZUMAB.
     Route: 065
     Dates: start: 201702

REACTIONS (1)
  - Dermatomyositis [Unknown]
